FAERS Safety Report 17521771 (Version 1)
Quarter: 2020Q1

REPORT INFORMATION
  Report Type: Spontaneous
  Country: US (occurrence: US)
  Receive Date: 20200310
  Receipt Date: 20200310
  Transmission Date: 20200409
  Serious: Yes (Hospitalization, Other)
  Sender: FDA-Public Use
  Company Number: US-SA-2020SA058378

PATIENT
  Sex: Male

DRUGS (1)
  1. TOUJEO [Suspect]
     Active Substance: INSULIN GLARGINE
     Dosage: 20 IU IN THE MORNING AND 30 IU AT NIGHT, BID
     Route: 065

REACTIONS (4)
  - Hospitalisation [Unknown]
  - Product use issue [Unknown]
  - Myocardial infarction [Unknown]
  - Blood glucose decreased [Unknown]
